FAERS Safety Report 4524202-9 (Version None)
Quarter: 2004Q4

REPORT INFORMATION
  Report Type: 
  Country: None (occurrence: None)
  Receive Date: 20041209
  Receipt Date: 20041129
  Transmission Date: 20050328
  Serious: Yes (Life-Threatening, Hospitalization)
  Sender: FDA-Public Use
  Company Number: 2004099232

PATIENT
  Age: 45 Year
  Sex: Female
  Weight: 67 kg

DRUGS (3)
  1. FELDENE [Suspect]
     Indication: BACK PAIN
     Dosage: (20 MG/ML, INTRAMUSCULAR
     Route: 030
     Dates: start: 20040915, end: 20040930
  2. ETORICOXIB (ETORICOXB) [Suspect]
     Indication: BACK PAIN
     Dosage: 60 MG, ORAL
     Route: 048
     Dates: start: 20040915, end: 20040930
  3. THIOCOLCHICOSIDE (THIOCOLOCHICOSIE) [Concomitant]

REACTIONS (6)
  - DISEASE RECURRENCE [None]
  - DRUG INTERACTION [None]
  - EMOTIONAL DISORDER [None]
  - PEPTIC ULCER PERFORATION [None]
  - PERITONITIS [None]
  - SCAR [None]
